FAERS Safety Report 6876215-X (Version None)
Quarter: 2010Q3

REPORT INFORMATION
  Report Type: 
  Country: None (occurrence: None)
  Receive Date: 20100727
  Receipt Date: 20100708
  Transmission Date: 20110219
  Serious: Yes (Hospitalization)
  Sender: FDA-Public Use
  Company Number: A0866975A

PATIENT
  Age: 58 Year
  Sex: Male
  Weight: 104.5 kg

DRUGS (7)
  1. AVANDIA [Suspect]
     Dosage: 4MG TWICE PER DAY
     Route: 048
     Dates: start: 20011106, end: 20080201
  2. GLIPIZIDE [Concomitant]
  3. GLUCOPHAGE [Concomitant]
  4. LOPID [Concomitant]
  5. LOPRESSOR [Concomitant]
  6. PRINIVIL [Concomitant]
  7. VYTORIN [Concomitant]

REACTIONS (5)
  - ANXIETY [None]
  - CARDIAC FAILURE CONGESTIVE [None]
  - CORONARY ARTERY DISEASE [None]
  - ISCHAEMIC CARDIOMYOPATHY [None]
  - MYOCARDIAL INFARCTION [None]
